FAERS Safety Report 5399685-5 (Version None)
Quarter: 2007Q3

REPORT INFORMATION
  Report Type: 
  Country: None (occurrence: None)
  Receive Date: 20070727
  Receipt Date: 20070717
  Transmission Date: 20080115
  Serious: Yes (Hospitalization)
  Sender: FDA-Public Use
  Company Number: MY-PFIZER INC-2007058867

PATIENT
  Sex: Female

DRUGS (5)
  1. DYNASTAT [Suspect]
     Indication: ANALGESIA
     Route: 042
     Dates: start: 20070701, end: 20070701
  2. CELEBREX [Suspect]
     Indication: ANALGESIA
     Route: 048
     Dates: start: 20070701, end: 20070711
  3. MELOXICAM [Concomitant]
     Route: 048
     Dates: start: 20070628, end: 20070630
  4. GABAPENTIN [Concomitant]
     Route: 048
     Dates: start: 20070701, end: 20070711
  5. EPERISONE [Concomitant]
     Route: 048
     Dates: start: 20070628, end: 20070630

REACTIONS (3)
  - DYSPHAGIA [None]
  - STEVENS-JOHNSON SYNDROME [None]
  - URETHRAL PAIN [None]
